FAERS Safety Report 9084590 (Version 1)
Quarter: 2013Q1

REPORT INFORMATION
  Report Type: Report from Study
  Country: US (occurrence: US)
  Receive Date: 20130131
  Receipt Date: 20130131
  Transmission Date: 20140127
  Serious: No
  Sender: FDA-Public Use
  Company Number: US-ABBOTT-12P-163-1014784-00

PATIENT
  Age: 61 Year
  Sex: Female

DRUGS (5)
  1. HUMIRA [Suspect]
     Indication: CROHN^S DISEASE
     Dates: start: 201209
  2. IMODIUM [Concomitant]
     Indication: DIARRHOEA
  3. HYMAX [Concomitant]
     Indication: DIARRHOEA
     Dosage: DAILY
  4. CLIMARA [Concomitant]
     Indication: HYSTERECTOMY
     Dosage: DAILY
  5. CLIMARA [Concomitant]

REACTIONS (4)
  - Rhinorrhoea [Not Recovered/Not Resolved]
  - Psoriasis [Unknown]
  - Erythema [Unknown]
  - Sinus headache [Unknown]
